FAERS Safety Report 7344558-1 (Version None)
Quarter: 2011Q1

REPORT INFORMATION
  Report Type: 
  Country: None (occurrence: None)
  Receive Date: 20110310
  Receipt Date: 20110301
  Transmission Date: 20110831
  Serious: Yes (Other)
  Sender: FDA-Public Use
  Company Number: IE-ALEXION PHARMACEUTICALS INC.-A201001417

PATIENT
  Sex: Female

DRUGS (1)
  1. SOLIRIS [Suspect]
     Indication: ACCIDENTAL EXPOSURE

REACTIONS (8)
  - SKIN BURNING SENSATION [None]
  - EYE PRURITUS [None]
  - RASH [None]
  - PRURITUS [None]
  - URTICARIA [None]
  - BLISTER [None]
  - VOMITING [None]
  - SWELLING FACE [None]
